FAERS Safety Report 14271055 (Version 1)
Quarter: 2017Q4

REPORT INFORMATION
  Report Type: Spontaneous
  Country: DK (occurrence: DK)
  Receive Date: 20171211
  Receipt Date: 20171211
  Transmission Date: 20180321
  Serious: Yes (Hospitalization, Other)
  Sender: FDA-Public Use
  Company Number: DK-MYLANLABS-2017M1076431

PATIENT
  Age: 76 Year
  Sex: Male

DRUGS (7)
  1. BACLOFEN MYLAN [Suspect]
     Active Substance: BACLOFEN
     Indication: MUSCLE SPASMS
     Dosage: STYRKE: 25 MG
     Route: 048
     Dates: start: 20171116
  2. IMDUR [Concomitant]
     Active Substance: ISOSORBIDE MONONITRATE
     Indication: CHEST PAIN
     Dosage: STYRKE: 30 MG
     Route: 048
     Dates: start: 20151015
  3. PAMOL [Concomitant]
     Active Substance: ACETAMINOPHEN
     Indication: PAIN
     Dosage: STYRKE: 500 MG. DOSIS: 2 TABLETTER EFTER BEHOV, H?JST 4 GANGE DAGLIG
     Route: 048
  4. TRAMADOL ACTAVIS [Concomitant]
     Active Substance: TRAMADOL
     Indication: PAIN
     Dosage: STYRKE: 50 MG. DOSIS: 1 KAPSEL VED BEHOV H?JST 3 GANGE DAGLIG
     Route: 048
  5. MOVICOL [Concomitant]
     Active Substance: POLYETHYLENE GLYCOL 3350\POTASSIUM CHLORIDE\SODIUM BICARBONATE\SODIUM CHLORIDE
     Indication: CONSTIPATION
     Route: 048
     Dates: start: 20151125
  6. FURIX [Concomitant]
     Active Substance: FUROSEMIDE
     Indication: DIURETIC THERAPY
     Dosage: STYRKE: 40 MG
     Route: 048
     Dates: start: 20150828
  7. TOILAX [Concomitant]
     Active Substance: BISACODYL
     Indication: CONSTIPATION
     Dosage: STYRKE: 5 MG. DOSIS: 1 TABLET EFTER BEHOV H?JST 6 GANGE DAGLIG
     Route: 048

REACTIONS (4)
  - Drug prescribing error [Recovered/Resolved]
  - Bradycardia [Recovered/Resolved]
  - Somnolence [Recovered/Resolved]
  - Prescribed overdose [Recovered/Resolved]

NARRATIVE: CASE EVENT DATE: 20171116
